FAERS Safety Report 19074817 (Version 1)
Quarter: 2021Q1

REPORT INFORMATION
  Report Type: Spontaneous
  Country: US (occurrence: US)
  Receive Date: 20210330
  Receipt Date: 20210330
  Transmission Date: 20210420
  Serious: No
  Sender: FDA-Public Use
  Company Number: US-ROCHE-2578951

PATIENT
  Sex: Female
  Weight: 54.48 kg

DRUGS (6)
  1. ERIVEDGE [Suspect]
     Active Substance: VISMODEGIB
     Indication: BASAL CELL CARCINOMA
     Dosage: YES
     Route: 048
  2. VITAMIN D3 [Concomitant]
     Active Substance: CHOLECALCIFEROL
  3. MAGNESIUM [Concomitant]
     Active Substance: MAGNESIUM
     Indication: MUSCLE SPASMS
  4. ESTROGEN [Concomitant]
     Active Substance: ESTROGENS
     Route: 062
  5. CALCIUM [Concomitant]
     Active Substance: CALCIUM
  6. PROGESTERONE. [Concomitant]
     Active Substance: PROGESTERONE

REACTIONS (8)
  - Alopecia [Unknown]
  - Muscle spasms [Unknown]
  - Pain [Unknown]
  - Fatigue [Unknown]
  - Weight decreased [Unknown]
  - Memory impairment [Unknown]
  - Immunosuppression [Unknown]
  - Ageusia [Unknown]
